FAERS Safety Report 4851847-9 (Version None)
Quarter: 2005Q4

REPORT INFORMATION
  Report Type: 
  Country: None (occurrence: None)
  Receive Date: 20051125
  Receipt Date: 20041210
  Transmission Date: 20060501
  Serious: Yes (Hospitalization, Other)
  Sender: FDA-Public Use
  Company Number: 2004097776

PATIENT
  Age: 43 Year
  Sex: Male
  Weight: 113.3993 kg

DRUGS (6)
  1. TIKOSYN [Suspect]
     Indication: ATRIAL FIBRILLATION
     Dosage: 1000 MCG (500 MCG,  2 IN 1 D), ORAL
     Route: 048
     Dates: start: 20041111
  2. FLECAINIDE ACETATE [Concomitant]
  3. CLOPIDOGREL BISULFATE [Concomitant]
  4. ASPIRIN [Concomitant]
  5. ALPRAZOLAM [Concomitant]
  6. DILTIAZEM HYDROCHLORIDE [Concomitant]

REACTIONS (4)
  - ATRIAL FIBRILLATION [None]
  - BLOOD PRESSURE INCREASED [None]
  - CONDITION AGGRAVATED [None]
  - HEART RATE INCREASED [None]
